FAERS Safety Report 9323233 (Version 2)
Quarter: 2013Q2

REPORT INFORMATION
  Report Type: Report from Study
  Country: US (occurrence: US)
  Receive Date: 20130603
  Receipt Date: 20130603
  Transmission Date: 20140414
  Serious: Yes (Hospitalization)
  Sender: FDA-Public Use
  Company Number: US-PFIZER INC-2013163142

PATIENT
  Age: 62 Year
  Sex: Female

DRUGS (4)
  1. DOXORUBICIN HCL [Suspect]
     Indication: BREAST CANCER STAGE II
     Dosage: 60 MG/M2 EVERY 2 WEEKS, CYCLIC
  2. CYCLOPHOSPHAMIDE [Suspect]
     Indication: BREAST CANCER STAGE II
  3. DOCETAXEL [Suspect]
     Indication: INVASIVE DUCTAL BREAST CARCINOMA
     Dosage: 75 MG/M2, EVERY 3 WEEKS (BSA=1.82 M2)
  4. PEGFILGRASTIM [Concomitant]

REACTIONS (1)
  - Palmar-plantar erythrodysaesthesia syndrome [Recovering/Resolving]
